FAERS Safety Report 24413450 (Version 1)
Quarter: 2024Q4

REPORT INFORMATION
  Report Type: Spontaneous
  Country: US (occurrence: US)
  Receive Date: 20241008
  Receipt Date: 20241008
  Transmission Date: 20250114
  Serious: Yes (Life-Threatening, Hospitalization)
  Sender: PERRIGO
  Company Number: US-MLMSERVICE-20240924-PI206795-00029-1

PATIENT
  Age: 35 Year
  Sex: Male

DRUGS (2)
  1. ACETAMINOPHEN [Suspect]
     Active Substance: ACETAMINOPHEN
     Indication: Headache
     Dosage: UNK, UNK
     Route: 048
  2. LORATADINE [Concomitant]
     Active Substance: LORATADINE
     Indication: Seasonal allergy
     Dosage: UNK, UNK
     Route: 065

REACTIONS (9)
  - Metabolic acidosis [Recovered/Resolved]
  - Multiple organ dysfunction syndrome [Recovered/Resolved]
  - Toxicity to various agents [Recovered/Resolved]
  - Acute hepatic failure [Recovered/Resolved]
  - Acute kidney injury [Recovered/Resolved]
  - Coma [Recovered/Resolved]
  - Hepatic necrosis [Recovered/Resolved]
  - Liver injury [Recovered/Resolved]
  - Hepatic encephalopathy [Recovered/Resolved]
